FAERS Safety Report 6821459-6 (Version None)
Quarter: 2010Q3

REPORT INFORMATION
  Report Type: 
  Country: None (occurrence: None)
  Receive Date: 20100707
  Receipt Date: 20081008
  Transmission Date: 20110219
  Serious: No
  Sender: FDA-Public Use
  Company Number: US-PFIZER INC-2008084744

PATIENT
  Age: 23 Year
  Sex: Male

DRUGS (2)
  1. ZOLOFT [Suspect]
  2. KLONOPIN [Concomitant]

REACTIONS (1)
  - ALCOHOLISM [None]
